FAERS Safety Report 20320814 (Version 1)
Quarter: 2022Q1

REPORT INFORMATION
  Report Type: Spontaneous
  Country: None (occurrence: US)
  Receive Date: 20220111
  Receipt Date: 20220111
  Transmission Date: 20220424
  Serious: No
  Sender: FDA-Public Use
  Company Number: US-SERB S.A.S.-2123792

PATIENT
  Age: 73 Year
  Sex: Male

DRUGS (2)
  1. CYANOKIT [Suspect]
     Active Substance: HYDROXOCOBALAMIN
     Indication: Vasoplegia syndrome
  2. METHYLENE BLUE [Concomitant]
     Active Substance: METHYLENE BLUE

REACTIONS (3)
  - Chromaturia [Recovered/Resolved]
  - Off label use [Recovered/Resolved]
  - Therapeutic response unexpected [Recovered/Resolved]
